FAERS Safety Report 9569570 (Version 3)
Quarter: 2014Q1

REPORT INFORMATION
  Report Type: Spontaneous
  Country: US (occurrence: US)
  Receive Date: 20130930
  Receipt Date: 20140225
  Transmission Date: 20141002
  Serious: No
  Sender: FDA-Public Use
  Company Number: US-AMGEN-USASP2013064313

PATIENT
  Age: 54 Year
  Sex: Female
  Weight: 101.1 kg

DRUGS (10)
  1. ENBREL [Suspect]
     Indication: PRODUCT USED FOR UNKNOWN INDICATION
     Dosage: 50 MG, QWK
     Route: 058
  2. METHOTREXATE [Concomitant]
     Dosage: 2.5 MG, UNK
  3. LIPITOR [Concomitant]
     Dosage: 10 MG, UNK
  4. CLARINEX                           /01202601/ [Concomitant]
     Dosage: 5 MG, UNK
  5. WELLBUTRIN [Concomitant]
     Dosage: 100 MG, UNK
  6. CLONIDINE [Concomitant]
     Dosage: 0.1 MG, UNK
  7. CALCIUM [Concomitant]
     Dosage: 500 UNK, UNK
  8. FOLIC ACID [Concomitant]
     Dosage: UNK
  9. VITAMIN B6 [Concomitant]
     Dosage: 50 MG, UNK
  10. BACTRIM [Concomitant]
     Dosage: (400-80 MG)UNK

REACTIONS (1)
  - Urinary tract infection [Unknown]
